FAERS Safety Report 6576122-6 (Version None)
Quarter: 2010Q1

REPORT INFORMATION
  Report Type: 
  Country: None (occurrence: None)
  Receive Date: 20100209
  Receipt Date: 20100205
  Transmission Date: 20100710
  Serious: Yes (Other)
  Sender: FDA-Public Use
  Company Number: PHEH2009US01813

PATIENT
  Sex: Female
  Weight: 5.102 kg

DRUGS (4)
  1. ELIDEL [Suspect]
     Indication: ECZEMA
     Dosage: UNK, UNK
     Route: 061
     Dates: start: 20040527
  2. HYDROCORTISONE [Concomitant]
     Indication: RASH
     Route: 061
  3. CLINDAMYCIN [Concomitant]
     Dosage: 600 MG, Q8H
  4. GENTAMICIN [Concomitant]
     Dosage: 80 MG, Q8H

REACTIONS (7)
  - ANAEMIA [None]
  - DRUG INEFFECTIVE [None]
  - GENERAL PHYSICAL HEALTH DETERIORATION [None]
  - NEPHRECTOMY [None]
  - NEPHROBLASTOMA [None]
  - RASH ERYTHEMATOUS [None]
  - THROMBOCYTOSIS [None]
